FAERS Safety Report 24928599 (Version 1)
Quarter: 2025Q1

REPORT INFORMATION
  Report Type: Spontaneous
  Country: FR (occurrence: FR)
  Receive Date: 20250205
  Receipt Date: 20250205
  Transmission Date: 20250409
  Serious: Yes (Congenital Anomaly, Other)
  Sender: FRESENIUS KABI
  Company Number: None

PATIENT
  Sex: Male
  Weight: 2.838 kg

DRUGS (7)
  1. ACETAMINOPHEN [Suspect]
     Active Substance: ACETAMINOPHEN
     Indication: Influenza like illness
     Route: 064
     Dates: start: 20220706, end: 20220806
  2. PHENYLEPHRINE HYDROCHLORIDE [Suspect]
     Active Substance: PHENYLEPHRINE HYDROCHLORIDE
     Indication: Influenza like illness
     Route: 064
     Dates: start: 20220706, end: 20220806
  3. CHLORPHENIRAMINE MALEATE [Suspect]
     Active Substance: CHLORPHENIRAMINE MALEATE
     Indication: Influenza like illness
     Route: 064
     Dates: start: 20220706, end: 20220806
  4. CAFFEINE [Suspect]
     Active Substance: CAFFEINE
     Indication: Influenza like illness
     Route: 064
     Dates: start: 20220706, end: 20220806
  5. TRANXENE [DIPOTASSIUM CLORAZEPATE] [Concomitant]
     Indication: Product used for unknown indication
  6. AMLOR [AMLODIPINE (BESILATE)] [Concomitant]
     Indication: Product used for unknown indication
  7. ALDOMET [METHYLDOPA SESQUIHYDRATE]] [Concomitant]
     Indication: Product used for unknown indication

REACTIONS (4)
  - Microcephaly [Not Recovered/Not Resolved]
  - Failure to thrive [Not Recovered/Not Resolved]
  - Maternal exposure during pregnancy [Recovered/Resolved]
  - Term birth [Recovered/Resolved]

NARRATIVE: CASE EVENT DATE: 20221113
